FAERS Safety Report 17337897 (Version 1)
Quarter: 2020Q1

REPORT INFORMATION
  Report Type: Spontaneous
  Country: US (occurrence: US)
  Receive Date: 20200129
  Receipt Date: 20200129
  Transmission Date: 20200409
  Serious: No
  Sender: FDA-Public Use
  Company Number: US-LEADING PHARMA LLC-US-2019LEASPO00033

PATIENT
  Age: 67 Year
  Sex: Male

DRUGS (1)
  1. GLYCOPYRROLATE TABLETS USP [Suspect]
     Active Substance: GLYCOPYRROLATE

REACTIONS (1)
  - Drug ineffective for unapproved indication [Not Recovered/Not Resolved]
